FAERS Safety Report 25445900 (Version 2)
Quarter: 2025Q3

REPORT INFORMATION
  Report Type: Report from Study
  Country: US (occurrence: US)
  Receive Date: 20250617
  Receipt Date: 20250820
  Transmission Date: 20251021
  Serious: No
  Sender: SUNOVION
  Company Number: US-SUMITOMO PHARMA SWITZERLAND GMBH-2025SPA006438

PATIENT
  Age: 81 Year
  Sex: Male

DRUGS (2)
  1. ORGOVYX [Suspect]
     Active Substance: RELUGOLIX
     Indication: Prostate cancer
     Route: 048
     Dates: start: 20250506, end: 20250506
  2. ORGOVYX [Suspect]
     Active Substance: RELUGOLIX
     Dosage: 120 MG, QD
     Route: 048
     Dates: start: 20250507

REACTIONS (8)
  - Nocturia [Unknown]
  - Feeling abnormal [Unknown]
  - Sciatica [Unknown]
  - Throat clearing [Unknown]
  - Urinary tract infection [Unknown]
  - Hot flush [Unknown]
  - Therapy interrupted [Recovered/Resolved]
  - Incorrect dose administered [Recovered/Resolved]
